FAERS Safety Report 10601689 (Version 1)
Quarter: 2014Q4

REPORT INFORMATION
  Report Type: Spontaneous
  Country: BE (occurrence: None)
  Receive Date: 20141120
  Receipt Date: 20141120
  Transmission Date: 20150529
  Serious: Yes (Congenital Anomaly, Other)
  Sender: FDA-Public Use
  Company Number: FK201405289

PATIENT
  Sex: Male
  Weight: 3.85 kg

DRUGS (1)
  1. VALPROATE (MANUFACTURER UNKNOWN) (VALPROATE SODIUM) (VALPROATE SODIUM) [Suspect]
     Active Substance: VALPROATE SODIUM
     Indication: PRODUCT USED FOR UNKNOWN INDICATION
     Route: 064

REACTIONS (9)
  - Autism [None]
  - Foetal anticonvulsant syndrome [None]
  - Conductive deafness [None]
  - Speech disorder developmental [None]
  - Ear malformation [None]
  - Motor developmental delay [None]
  - Maternal drugs affecting foetus [None]
  - Hypertelorism of orbit [None]
  - Hypertonic bladder [None]
